FAERS Safety Report 17350220 (Version 1)
Quarter: 2020Q1

REPORT INFORMATION
  Report Type: Report from Study
  Country: GR (occurrence: GR)
  Receive Date: 20200130
  Receipt Date: 20200130
  Transmission Date: 20200409
  Serious: Yes (Death)
  Sender: FDA-Public Use
  Company Number: GR-PFIZER INC-2020037351

PATIENT
  Sex: Male

DRUGS (5)
  1. ETOPOSIDE. [Suspect]
     Active Substance: ETOPOSIDE
  2. CYTARABINE. [Suspect]
     Active Substance: CYTARABINE
  3. SOLU-MEDROL [Suspect]
     Active Substance: METHYLPREDNISOLONE SODIUM SUCCINATE
  4. RITUXIMAB. [Suspect]
     Active Substance: RITUXIMAB
     Dosage: 1 CYCLE
  5. CISPLATIN. [Suspect]
     Active Substance: CISPLATIN

REACTIONS (1)
  - Death [Fatal]
